FAERS Safety Report 11151323 (Version 2)
Quarter: 2018Q1

REPORT INFORMATION
  Report Type: Spontaneous
  Country: KR (occurrence: KR)
  Receive Date: 20150601
  Receipt Date: 20180118
  Transmission Date: 20180508
  Serious: Yes (Hospitalization)
  Sender: FDA-Public Use
  Company Number: KR-JNJFOC-20150515170

PATIENT
  Age: 26 Year
  Sex: Female
  Weight: 49 kg

DRUGS (4)
  1. TYLENOL ER [Suspect]
     Active Substance: ACETAMINOPHEN
     Route: 048
  2. TYLENOL ER [Suspect]
     Active Substance: ACETAMINOPHEN
     Indication: PRODUCT USED FOR UNKNOWN INDICATION
     Dosage: 20 TABLETS (265.3MG/KG)
     Route: 048
  3. DIPHENHYDRAMINE. [Suspect]
     Active Substance: DIPHENHYDRAMINE
     Indication: PRODUCT USED FOR UNKNOWN INDICATION
     Route: 048
  4. ALCOHOL. [Suspect]
     Active Substance: ALCOHOL
     Indication: PRODUCT USED FOR UNKNOWN INDICATION
     Route: 048

REACTIONS (4)
  - Overdose [Unknown]
  - Suicide attempt [Unknown]
  - Acute hepatic failure [Recovering/Resolving]
  - Drug administration error [Unknown]
